FAERS Safety Report 7532674-0 (Version None)
Quarter: 2011Q2

REPORT INFORMATION
  Report Type: 
  Country: None (occurrence: None)
  Receive Date: 20110608
  Receipt Date: 20110520
  Transmission Date: 20111010
  Serious: Yes (Hospitalization)
  Sender: FDA-Public Use
  Company Number: A0802701A

PATIENT
  Age: 57 Year
  Sex: Female
  Weight: 106.8 kg

DRUGS (4)
  1. AVANDIA [Suspect]
     Indication: DIABETES MELLITUS
     Dosage: 4MG PER DAY
     Route: 048
     Dates: start: 20040101, end: 20070401
  2. LISINOPRIL [Concomitant]
  3. METFORMIN HCL [Concomitant]
  4. ZOCOR [Concomitant]

REACTIONS (4)
  - JOINT SWELLING [None]
  - MYOCARDIAL INFARCTION [None]
  - MYOCARDIAL ISCHAEMIA [None]
  - WEIGHT INCREASED [None]
